FAERS Safety Report 6546778-2 (Version None)
Quarter: 2010Q1

REPORT INFORMATION
  Report Type: 
  Country: None (occurrence: None)
  Receive Date: 20100122
  Receipt Date: 20100111
  Transmission Date: 20100710
  Serious: Yes (Hospitalization)
  Sender: FDA-Public Use
  Company Number: RU-PFIZER INC-2010004069

PATIENT
  Age: 38 Year
  Sex: Female

DRUGS (3)
  1. CELEBREX [Suspect]
     Indication: OSTEOCHONDROSIS
     Dosage: 200 MG, 2X/DAY
     Route: 048
     Dates: start: 20091103, end: 20091105
  2. CELEBREX [Suspect]
     Indication: RADICULITIS
  3. DIPROSPAN [Concomitant]
     Dosage: 1 ML, UNK
     Route: 030
     Dates: start: 20091102

REACTIONS (2)
  - DUODENAL ULCER PERFORATION [None]
  - PERITONITIS [None]
